FAERS Safety Report 8623072 (Version 5)
Quarter: 2012Q4

REPORT INFORMATION
  Report Type: 
  Country: NL (occurrence: NL)
  Receive Date: 20120620
  Receipt Date: 20120910
  Transmission Date: 20130627
  Serious: Yes (Hospitalization, Other)
  Sender: FDA-Public Use
  Company Number: NL-BIOGENIDEC-2012BI018720

PATIENT
  Age: 39 Year
  Sex: Male

DRUGS (1)
  1. TYSABRI [Suspect]
     Indication: MULTIPLE SCLEROSIS
     Route: 042
     Dates: start: 200612, end: 201204

REACTIONS (3)
  - Progressive multifocal leukoencephalopathy [Unknown]
  - Epilepsy [Recovered/Resolved]
  - Immune reconstitution inflammatory syndrome [Unknown]
